FAERS Safety Report 7598216-9 (Version None)
Quarter: 2011Q3

REPORT INFORMATION
  Report Type: 
  Country: None (occurrence: None)
  Receive Date: 20110708
  Receipt Date: 20110707
  Transmission Date: 20111222
  Serious: Yes (Other)
  Sender: FDA-Public Use
  Company Number: IN-ROXANE LABORATORIES, INC.-2011-RO-00956RO

PATIENT
  Age: 22 Year
  Sex: Female

DRUGS (3)
  1. PHENYTOIN [Suspect]
     Indication: BRAIN TUMOUR OPERATION
  2. VANCOMYCIN [Suspect]
     Indication: BRAIN TUMOUR OPERATION
  3. DEXAMETHASONE [Suspect]
     Indication: BRAIN TUMOUR OPERATION

REACTIONS (2)
  - STEVENS-JOHNSON SYNDROME [None]
  - RED MAN SYNDROME [None]
